APPROVED DRUG PRODUCT: VERAPAMIL HYDROCHLORIDE
Active Ingredient: VERAPAMIL HYDROCHLORIDE
Strength: 240MG
Dosage Form/Route: TABLET, EXTENDED RELEASE;ORAL
Application: A075072 | Product #003 | TE Code: AB
Applicant: STRIDES PHARMA INTERNATIONAL AG
Approved: May 25, 1999 | RLD: No | RS: No | Type: RX